FAERS Safety Report 5595577-7 (Version None)
Quarter: 2008Q1

REPORT INFORMATION
  Report Type: 
  Country: None (occurrence: None)
  Receive Date: 20080118
  Receipt Date: 20080114
  Transmission Date: 20080703
  Serious: Yes (Life-Threatening, Hospitalization)
  Sender: FDA-Public Use
  Company Number: PHNU2008DE00538

PATIENT
  Age: 77 Year
  Sex: Male

DRUGS (27)
  1. BERODUAL [Concomitant]
     Indication: CHRONIC OBSTRUCTIVE PULMONARY DISEASE
     Dosage: 2 DF, BID
     Dates: end: 20040725
  2. TRAMADOL HCL [Concomitant]
     Indication: PAIN
     Dosage: 30 DRP, QD
     Route: 048
     Dates: start: 20040728, end: 20040728
  3. POTASSIUM CHLORIDE [Concomitant]
     Dosage: 2 DF, TID
     Route: 048
     Dates: start: 20040804, end: 20040809
  4. ALDACTONE [Concomitant]
     Indication: CARDIAC FAILURE
     Dosage: 100 MG, QD
     Route: 048
     Dates: start: 20040806, end: 20040809
  5. ACERCOMP [Suspect]
     Indication: HYPERTENSION
     Dosage: 1 DF, QD
     Route: 048
     Dates: start: 20040717, end: 20040809
  6. NEBILET [Suspect]
     Indication: TACHYCARDIA
     Dosage: UP TO 10 MG/DAY
     Route: 048
     Dates: start: 20040714, end: 20040814
  7. LOPIRIN [Suspect]
     Indication: HYPERTENSION
     Dosage: 25 MG, BID
     Route: 048
     Dates: start: 20040714, end: 20040101
  8. LOPIRIN [Suspect]
     Dosage: 25 MG, QD
     Route: 048
     Dates: start: 20040101, end: 20040814
  9. PULMICORT [Suspect]
     Indication: CHRONIC OBSTRUCTIVE PULMONARY DISEASE
     Dosage: 1 DF, BID
     Dates: start: 20040717, end: 20040814
  10. PANTOZOL [Suspect]
     Indication: PROPHYLAXIS AGAINST GASTROINTESTINAL ULCER
     Dosage: UNKNOWN
     Route: 048
     Dates: start: 20040708, end: 20040814
  11. ASPIRIN [Suspect]
     Indication: THROMBOSIS PROPHYLAXIS
     Dosage: 100 MG, QD
     Route: 048
     Dates: start: 20040717, end: 20040804
  12. CLEXANE [Suspect]
     Indication: THROMBOSIS PROPHYLAXIS
     Dosage: UP TO TWICE DAILY
     Route: 058
     Dates: start: 20040728, end: 20040806
  13. FORADIL [Suspect]
     Indication: CHRONIC OBSTRUCTIVE PULMONARY DISEASE
     Dosage: 1 DF, BID
     Dates: start: 20040726, end: 20040814
  14. ACETYLCYSTEINE [Suspect]
     Indication: COUGH
     Dosage: 600 MG, QD
     Route: 048
     Dates: start: 20040728, end: 20040814
  15. PARACODIN BITARTRATE TAB [Suspect]
     Indication: COUGH
     Dosage: 30 DRP, QD
     Route: 048
     Dates: start: 20040729, end: 20040807
  16. TOREM [Suspect]
     Indication: CARDIAC FAILURE
     Dosage: UP TO 20 MG/DAY
     Route: 048
     Dates: start: 20040730, end: 20040809
  17. DICODID [Suspect]
     Indication: CHRONIC OBSTRUCTIVE PULMONARY DISEASE
     Dosage: 0.5 DF, ONCE/SINGLE
     Route: 058
     Dates: start: 20040803, end: 20040803
  18. CEPHORAL [Suspect]
     Indication: CHRONIC OBSTRUCTIVE PULMONARY DISEASE
     Dosage: 200 MG, BID
     Route: 048
     Dates: start: 20040803, end: 20040814
  19. URBASON [Suspect]
     Indication: CHRONIC OBSTRUCTIVE PULMONARY DISEASE
     Dosage: UNKNOWN
     Route: 048
     Dates: start: 20040708, end: 20040805
  20. AMLODIPINE [Concomitant]
     Indication: HYPERTENSION
     Dosage: 1 DF, QD
     Route: 048
     Dates: start: 20040810, end: 20040814
  21. ATROVENT [Concomitant]
     Indication: CHRONIC OBSTRUCTIVE PULMONARY DISEASE
     Dosage: AS NEEDED
     Dates: start: 20040810, end: 20040814
  22. BRONCHO SPRAY [Concomitant]
     Indication: CHRONIC OBSTRUCTIVE PULMONARY DISEASE
     Dosage: AS NEEDED
     Dates: start: 20040810, end: 20040814
  23. TORASEMIDE [Concomitant]
     Indication: CARDIAC FAILURE
     Dosage: 5 MG, QD
     Route: 048
     Dates: start: 20040810, end: 20040814
  24. SPIRONOLACTONE [Concomitant]
     Indication: CARDIAC FAILURE
     Dosage: 50 MG, QD
     Route: 048
     Dates: start: 20040810, end: 20040814
  25. LISIPLUS [Concomitant]
     Indication: HYPERTENSION
     Dosage: 1 DF, QD
     Route: 048
     Dates: start: 20040810, end: 20040814
  26. KALITRANS [Concomitant]
     Dosage: 2 DF, BID
     Route: 048
     Dates: start: 20040810
  27. NORVASC [Suspect]
     Indication: HYPERTENSION
     Dosage: 5 MG, QD
     Route: 048
     Dates: start: 20040717, end: 20040809

REACTIONS (7)
  - BLISTER [None]
  - LIP EROSION [None]
  - NIKOLSKY'S SIGN [None]
  - PRURITUS [None]
  - RASH [None]
  - STEVENS-JOHNSON SYNDROME [None]
  - TOXIC EPIDERMAL NECROLYSIS [None]
